FAERS Safety Report 9880612 (Version 3)
Quarter: 2014Q2

REPORT INFORMATION
  Report Type: Report from Study
  Country: CA (occurrence: CA)
  Receive Date: 20140207
  Receipt Date: 20140410
  Transmission Date: 20141212
  Serious: Yes (Other)
  Sender: FDA-Public Use
  Company Number: CA-JNJFOC-20140200941

PATIENT
  Age: 59 Year
  Sex: Male
  Weight: 74 kg

DRUGS (3)
  1. REMICADE [Suspect]
     Indication: CROHN^S DISEASE
     Dosage: TOTAL 46 INFUSIONS RECEIVED
     Route: 042
     Dates: start: 20140314
  2. REMICADE [Suspect]
     Indication: CROHN^S DISEASE
     Dosage: APPROX. TOTAL NUMBER OF 46 INFUSIONS RECEIVED; DOSE: 5 MG/KG
     Route: 042
     Dates: start: 20080730
  3. SOLU-CORTEF [Concomitant]
     Indication: PREMEDICATION
     Route: 042

REACTIONS (4)
  - Skin cancer [Unknown]
  - Skin cancer [Unknown]
  - Squamous cell carcinoma of skin [Unknown]
  - Basal cell carcinoma [Unknown]
